FAERS Safety Report 21679081 (Version 2)
Quarter: 2023Q2

REPORT INFORMATION
  Report Type: Report from Study
  Country: CA (occurrence: CA)
  Receive Date: 20221204
  Receipt Date: 20230426
  Transmission Date: 20230721
  Serious: Yes (Other)
  Sender: FDA-Public Use
  Company Number: CA-ABBVIE-22K-028-4528469-00

PATIENT
  Age: 75 Year
  Sex: Male

DRUGS (6)
  1. RINVOQ [Suspect]
     Active Substance: UPADACITINIB
     Indication: Rheumatoid arthritis
     Dosage: FORM STRENGTH WAS 15 MILLIGRAMS
     Route: 048
     Dates: start: 20201111, end: 202205
  2. RINVOQ [Suspect]
     Active Substance: UPADACITINIB
     Indication: Rheumatoid arthritis
     Dosage: FORM STRENGTH WAS 15 MILLIGRAMS
     Route: 048
     Dates: start: 202209
  3. RINVOQ [Suspect]
     Active Substance: UPADACITINIB
     Indication: Rheumatoid arthritis
     Dosage: FORM STRENGTH WAS 15 MILLIGRAMS
     Route: 048
     Dates: start: 202211
  4. RUPATADINE FUMARATE [Suspect]
     Active Substance: RUPATADINE FUMARATE
     Indication: Pruritus
     Route: 065
  5. PREGABALIN [Suspect]
     Active Substance: PREGABALIN
     Indication: Product used for unknown indication
     Route: 065
  6. CETIRIZINE HYDROCHLORIDE [Suspect]
     Active Substance: CETIRIZINE HYDROCHLORIDE
     Indication: Pruritus
     Route: 065

REACTIONS (8)
  - Intestinal polyp [Unknown]
  - SARS-CoV-2 test positive [Unknown]
  - Gastric disorder [Unknown]
  - Speech disorder [Unknown]
  - Weight decreased [Recovering/Resolving]
  - Pruritus [Not Recovered/Not Resolved]
  - Dry throat [Unknown]
  - Arthralgia [Unknown]

NARRATIVE: CASE EVENT DATE: 20221021
